FAERS Safety Report 7801571-5 (Version None)
Quarter: 2011Q4

REPORT INFORMATION
  Report Type: 
  Country: None (occurrence: None)
  Receive Date: 20111006
  Receipt Date: 20111006
  Transmission Date: 20120403
  Serious: Yes (Hospitalization)
  Sender: FDA-Public Use
  Company Number: None

PATIENT
  Age: 73 Year
  Sex: Male
  Weight: 115 kg

DRUGS (8)
  1. GLYBURIDE [Concomitant]
  2. ALLOPURINOL [Concomitant]
  3. OXYBUTYNIN [Suspect]
     Indication: DYSURIA
     Dosage: 5MG TID PRN PO RECENT
     Route: 048
  4. NIASPAN [Concomitant]
  5. CIPROFLOXACIN [Concomitant]
  6. LISINOPRIL AND HYDROCHLOROTHIAZIDE [Concomitant]
  7. ACTOS [Concomitant]
  8. LORTAB [Concomitant]

REACTIONS (4)
  - HYPONATRAEMIA [None]
  - BLOOD CREATININE INCREASED [None]
  - DYSTONIA [None]
  - HYPOVOLAEMIA [None]
